FAERS Safety Report 13243411 (Version 7)
Quarter: 2017Q1

REPORT INFORMATION
  Report Type: Report from Study
  Country: GR (occurrence: GR)
  Receive Date: 20170217
  Receipt Date: 20170331
  Transmission Date: 20170428
  Serious: Yes (Death, Life-Threatening, Hospitalization, Disabling, Other)
  Sender: FDA-Public Use
  Company Number: PHHY2017GR022523

PATIENT
  Age: 60 Year
  Sex: Male
  Weight: 100 kg

DRUGS (17)
  1. ACENOCOUMAROL [Concomitant]
     Active Substance: ACENOCOUMAROL
     Indication: ATRIAL FIBRILLATION
     Dosage: 4 MG, UNK
     Route: 048
     Dates: start: 2014, end: 20170207
  2. ANTORCIN [Concomitant]
     Active Substance: ATORVASTATIN CALCIUM
     Indication: PRODUCT USED FOR UNKNOWN INDICATION
     Dosage: 40 MG, QD
     Route: 065
  3. XARELTO [Concomitant]
     Active Substance: RIVAROXABAN
     Indication: PRODUCT USED FOR UNKNOWN INDICATION
     Dosage: 20 MG, QD
     Route: 065
  4. SPIRONOLACTONE. [Concomitant]
     Active Substance: SPIRONOLACTONE
     Indication: CARDIAC FAILURE
     Dosage: 50 MG, UNK
     Route: 065
     Dates: start: 2012
  5. ENTRESTO [Suspect]
     Active Substance: SACUBITRIL\VALSARTAN
     Dosage: UNK
     Route: 048
     Dates: start: 20170304
  6. INOSAMIN [Concomitant]
     Indication: CARDIAC FAILURE
     Dosage: 25 MG, QD
     Route: 065
     Dates: start: 2012
  7. ATORVASTATIN [Concomitant]
     Active Substance: ATORVASTATIN
     Indication: PRODUCT USED FOR UNKNOWN INDICATION
     Dosage: 40 MG, QD
     Route: 065
  8. ENTRESTO [Suspect]
     Active Substance: SACUBITRIL\VALSARTAN
     Dosage: 50 MG, BID
     Route: 048
     Dates: start: 20170125, end: 20170209
  9. ENTRESTO [Suspect]
     Active Substance: SACUBITRIL\VALSARTAN
     Dosage: 50 MG, BID
     Route: 048
     Dates: start: 20170314
  10. SALUREX [Concomitant]
     Indication: CARDIAC FAILURE
     Dosage: 250 MG, UNK
     Route: 065
     Dates: start: 201612, end: 201701
  11. SALUREX [Concomitant]
     Dosage: 100 MG, QD
     Route: 065
  12. HYDROFLUX [Concomitant]
     Indication: PRODUCT USED FOR UNKNOWN INDICATION
     Dosage: 40 MG, QD
     Route: 065
  13. BISOPROLOL [Concomitant]
     Active Substance: BISOPROLOL
     Indication: PRODUCT USED FOR UNKNOWN INDICATION
     Dosage: 2.5 MG, QD
     Route: 065
  14. ENTRESTO [Suspect]
     Active Substance: SACUBITRIL\VALSARTAN
     Indication: CARDIAC FAILURE
     Dosage: 100 MG, BID
     Route: 048
     Dates: start: 20160914, end: 20170124
  15. FUROSEMIDE. [Concomitant]
     Active Substance: FUROSEMIDE
     Indication: CARDIAC FAILURE
     Dosage: 40 MG, UNK
     Route: 065
     Dates: start: 20170208
  16. RIVAROXABAN [Concomitant]
     Active Substance: RIVAROXABAN
     Indication: ATRIAL FIBRILLATION
     Dosage: 20 MG, UNK
     Route: 065
     Dates: start: 20170208
  17. INNOHEP [Concomitant]
     Active Substance: TINZAPARIN SODIUM
     Indication: ATRIAL FIBRILLATION
     Dosage: 0.35 OT, UNK
     Route: 065
     Dates: start: 20170317

REACTIONS (29)
  - Syncope [Recovering/Resolving]
  - Blood bilirubin increased [Unknown]
  - Alanine aminotransferase increased [Unknown]
  - Subdural haematoma [Recovering/Resolving]
  - Renal failure [Unknown]
  - Presyncope [Recovered/Resolved]
  - White blood cell count increased [Unknown]
  - Protein total decreased [Unknown]
  - Red blood cell count decreased [Unknown]
  - Dyspnoea [Recovering/Resolving]
  - Chronic kidney disease [Unknown]
  - Weight increased [Unknown]
  - Blood glucose increased [Recovered/Resolved]
  - International normalised ratio increased [Unknown]
  - C-reactive protein increased [Unknown]
  - Death [Fatal]
  - Haemorrhage intracranial [Recovering/Resolving]
  - Cardiac failure [Recovered/Resolved]
  - Oedema peripheral [Recovered/Resolved]
  - Seizure [Recovering/Resolving]
  - Hypotension [Recovered/Resolved]
  - Jugular vein distension [Recovered/Resolved]
  - Haematocrit decreased [Unknown]
  - Prothrombin time prolonged [Unknown]
  - Brain natriuretic peptide increased [Unknown]
  - Rales [Recovered/Resolved]
  - Condition aggravated [Unknown]
  - Haemoglobin decreased [Unknown]
  - Aspartate aminotransferase increased [Unknown]

NARRATIVE: CASE EVENT DATE: 20170124
